FAERS Safety Report 9360893 (Version 3)
Quarter: 2013Q3

REPORT INFORMATION
  Report Type: Spontaneous
  Country: US (occurrence: US)
  Receive Date: 20130621
  Receipt Date: 20130827
  Transmission Date: 20140515
  Serious: Yes (Other)
  Sender: FDA-Public Use
  Company Number: US-PFIZER INC-2013184816

PATIENT
  Sex: Female

DRUGS (1)
  1. LYRICA [Suspect]
     Indication: NEUROPATHY PERIPHERAL
     Dosage: UNK
     Dates: start: 20130115, end: 20130529

REACTIONS (5)
  - Scoliosis [Unknown]
  - Intervertebral disc degeneration [Unknown]
  - Dysstasia [Unknown]
  - Neuropathy peripheral [Unknown]
  - Drug ineffective [Unknown]
